FAERS Safety Report 10070487 (Version 1)
Quarter: 2014Q2

REPORT INFORMATION
  Report Type: Spontaneous
  Country: US (occurrence: None)
  Receive Date: 20140409
  Receipt Date: 20140409
  Transmission Date: 20141212
  Serious: Yes (Other)
  Sender: FDA-Public Use
  Company Number: None

PATIENT
  Sex: 0

DRUGS (2)
  1. DIPRIVAN [Suspect]
     Indication: INDUCTION OF ANAESTHESIA
     Dosage: 50-150MG ?ONE TIME?IV BOLUS
     Route: 040
     Dates: start: 20140226, end: 20140314
  2. DIPRIVAN [Suspect]
     Indication: SEDATION
     Dosage: 50-150MG ?ONE TIME?IV BOLUS
     Route: 040
     Dates: start: 20140226, end: 20140314

REACTIONS (4)
  - Salivary hypersecretion [None]
  - Muscle rigidity [None]
  - Bronchospasm [None]
  - Tonic clonic movements [None]
